FAERS Safety Report 19698626 (Version 1)
Quarter: 2021Q3

REPORT INFORMATION
  Report Type: Spontaneous
  Country: GB (occurrence: GB)
  Receive Date: 20210813
  Receipt Date: 20210813
  Transmission Date: 20211014
  Serious: No
  Sender: FDA-Public Use
  Company Number: GB-ALKEM LABORATORIES LIMITED-GB-ALKEM-2021-02883

PATIENT
  Age: 55 Year
  Sex: Female
  Weight: 82 kg

DRUGS (6)
  1. FLUCLOXACILLIN [Concomitant]
     Active Substance: FLUCLOXACILLIN
     Indication: ILL-DEFINED DISORDER
     Dosage: 1 DOSAGE FORM, QID
     Route: 065
     Dates: start: 20210301, end: 20210308
  2. GLYCEROL [Concomitant]
     Active Substance: GLYCERIN
     Indication: ILL-DEFINED DISORDER
     Dosage: UNK, INSERT ONE AS NEEDED
     Route: 065
     Dates: start: 20200302
  3. PREGABALIN. [Suspect]
     Active Substance: PREGABALIN
     Indication: ILL-DEFINED DISORDER
     Dosage: UNK
     Route: 065
     Dates: start: 20210426
  4. GABAPENTIN. [Concomitant]
     Active Substance: GABAPENTIN
     Indication: ILL-DEFINED DISORDER
     Dosage: 1 DOSAGE FORM, BID
     Route: 065
     Dates: start: 20200908, end: 20210414
  5. BUTRANS [Concomitant]
     Active Substance: BUPRENORPHINE
     Indication: ILL-DEFINED DISORDER
     Dosage: UNK, APPLY ONE WEEKLY
     Route: 065
     Dates: start: 20200302
  6. PREGABALIN. [Concomitant]
     Active Substance: PREGABALIN
     Indication: ILL-DEFINED DISORDER
     Dosage: 1 DOSAGE FORM, BID
     Route: 065
     Dates: start: 20210414, end: 20210426

REACTIONS (1)
  - Peripheral swelling [Recovered/Resolved]

NARRATIVE: CASE EVENT DATE: 20210510
